FAERS Safety Report 8220702-9 (Version None)
Quarter: 2012Q1

REPORT INFORMATION
  Report Type: 
  Country: None (occurrence: None)
  Receive Date: 20120320
  Receipt Date: 20120312
  Transmission Date: 20120608
  Serious: Yes (Other)
  Sender: FDA-Public Use
  Company Number: US-BAYER-2012-024393

PATIENT
  Age: 64 Year
  Sex: Male
  Weight: 95 kg

DRUGS (2)
  1. ASPIRIN [Suspect]
     Dosage: 2 DF, QD
     Route: 048
     Dates: start: 20050901
  2. ASPIRIN [Suspect]
     Indication: ISCHAEMIC HEART DISEASE PROPHYLAXIS
     Dosage: 2 DF, ONCE
     Route: 048
     Dates: start: 20050901, end: 20050901

REACTIONS (1)
  - UNEVALUABLE EVENT [None]
